FAERS Safety Report 15245760 (Version 1)
Quarter: 2018Q3

REPORT INFORMATION
  Report Type: Report from Study
  Country: JP (occurrence: JP)
  Receive Date: 20180806
  Receipt Date: 20180806
  Transmission Date: 20181010
  Serious: Yes (Hospitalization, Other)
  Sender: FDA-Public Use
  Company Number: JP-SA-2018SA210786

PATIENT
  Age: 79 Year
  Sex: Male

DRUGS (8)
  1. DARBEPOETIN ALFA [Suspect]
     Active Substance: DARBEPOETIN ALFA
     Dosage: UNK
     Route: 042
     Dates: start: 20160504, end: 20160623
  2. DARBEPOETIN ALFA [Suspect]
     Active Substance: DARBEPOETIN ALFA
     Dosage: UNK
     Route: 042
     Dates: start: 20170531, end: 20180111
  3. DARBEPOETIN ALFA [Suspect]
     Active Substance: DARBEPOETIN ALFA
     Dosage: UNK
  4. DARBEPOETIN ALFA [Suspect]
     Active Substance: DARBEPOETIN ALFA
     Dosage: UNK
     Route: 042
     Dates: start: 20161109, end: 20170516
  5. SEVELAMER HYDROCHLORIDE [Suspect]
     Active Substance: SEVELAMER HYDROCHLORIDE
     Indication: PRODUCT USED FOR UNKNOWN INDICATION
     Dosage: UNK
     Route: 048
     Dates: start: 20140625, end: 20170221
  6. ROCALTROL [Suspect]
     Active Substance: CALCITRIOL
     Indication: PRODUCT USED FOR UNKNOWN INDICATION
     Dosage: UNK
     Route: 042
     Dates: start: 20131021, end: 20160328
  7. DARBEPOETIN ALFA [Suspect]
     Active Substance: DARBEPOETIN ALFA
     Dosage: UNK
     Route: 042
     Dates: start: 20160907, end: 20161109
  8. DARBEPOETIN ALFA [Suspect]
     Active Substance: DARBEPOETIN ALFA
     Dosage: UNK
     Route: 042
     Dates: start: 20160330, end: 20160427

REACTIONS (13)
  - Pleural effusion [Recovering/Resolving]
  - Pleural effusion [Recovering/Resolving]
  - Anaemia [Recovering/Resolving]
  - Neoplasm malignant [Recovering/Resolving]
  - Gastrointestinal haemorrhage [Recovering/Resolving]
  - Pleural effusion [Recovering/Resolving]
  - Hospitalisation [Recovering/Resolving]
  - Metastatic neoplasm [Recovering/Resolving]
  - Pleural effusion [Recovering/Resolving]
  - Arteriovenous fistula site complication [Recovering/Resolving]
  - Metastatic neoplasm [Recovering/Resolving]
  - Anaemia [Recovering/Resolving]
  - Arteriovenous fistula site complication [Recovering/Resolving]

NARRATIVE: CASE EVENT DATE: 20160220
